FAERS Safety Report 25798628 (Version 1)
Quarter: 2025Q3

REPORT INFORMATION
  Report Type: Spontaneous
  Country: TW (occurrence: TW)
  Receive Date: 20250913
  Receipt Date: 20250913
  Transmission Date: 20251021
  Serious: Yes (Life-Threatening, Hospitalization, Other)
  Sender: SANOFI AVENTIS
  Company Number: TW-DialogSolutions-SAAVPROD-PI821052-C1

PATIENT
  Age: 72 Year
  Sex: Male

DRUGS (5)
  1. DOCETAXEL [Suspect]
     Active Substance: DOCETAXEL
     Indication: Sarcomatoid carcinoma
  2. DOCETAXEL [Suspect]
     Active Substance: DOCETAXEL
  3. NIVOLUMAB [Suspect]
     Active Substance: NIVOLUMAB
     Indication: Sarcomatoid carcinoma
  4. NIVOLUMAB [Suspect]
     Active Substance: NIVOLUMAB
  5. CISPLATIN [Suspect]
     Active Substance: CISPLATIN
     Indication: Sarcomatoid carcinoma

REACTIONS (14)
  - Guillain-Barre syndrome [Recovering/Resolving]
  - Neurological symptom [Recovering/Resolving]
  - Muscular weakness [Recovering/Resolving]
  - Dysarthria [Recovering/Resolving]
  - Dysphagia [Recovering/Resolving]
  - Eye movement disorder [Recovering/Resolving]
  - Diplegia [Recovering/Resolving]
  - Areflexia [Recovering/Resolving]
  - Polyneuropathy [Recovering/Resolving]
  - Paralysis [Recovering/Resolving]
  - Off label use [Recovering/Resolving]
  - Respiratory failure [Recovering/Resolving]
  - Respiratory muscle weakness [Recovering/Resolving]
  - Respiratory distress [Recovering/Resolving]
